FAERS Safety Report 8556668-1 (Version None)
Quarter: 2012Q3

REPORT INFORMATION
  Report Type: 
  Country: None (occurrence: None)
  Receive Date: 20120801
  Receipt Date: 20120720
  Transmission Date: 20120928
  Serious: Yes (Other)
  Sender: FDA-Public Use
  Company Number: DE-CELGENEUS-062-21880-12072433

PATIENT
  Age: 67 Year
  Sex: Male
  Weight: 87 kg

DRUGS (4)
  1. FINASTERIDE [Concomitant]
     Route: 065
     Dates: start: 20101008
  2. IRBESARTAN AND HYDROCHLOROTHIAZIDE [Concomitant]
     Indication: HYPERTENSION
     Route: 065
  3. REVLIMID [Suspect]
     Indication: MULTIPLE MYELOMA
     Dosage: 15 OR 25 MG DAILY
     Route: 048
     Dates: start: 20091106, end: 20110512
  4. CARVEDILOL [Concomitant]
     Indication: HYPERTENSION
     Route: 065

REACTIONS (1)
  - MYELODYSPLASTIC SYNDROME [None]
